FAERS Safety Report 9418035 (Version 1)
Quarter: 2013Q3

REPORT INFORMATION
  Report Type: Spontaneous
  Country: US (occurrence: US)
  Receive Date: 20130724
  Receipt Date: 20130724
  Transmission Date: 20140515
  Serious: No
  Sender: FDA-Public Use
  Company Number: US-BAUSCH-2012BL004217

PATIENT
  Age: 23 Year
  Sex: Female

DRUGS (1)
  1. OPCON-A [Suspect]
     Indication: EYE ALLERGY
     Dosage: ONE DROP IN BOTH EYES ONE TIME
     Route: 047
     Dates: start: 20120705, end: 20120705

REACTIONS (1)
  - Eye irritation [Recovered/Resolved]
